FAERS Safety Report 5196520-5 (Version None)
Quarter: 2006Q4

REPORT INFORMATION
  Report Type: 
  Country: None (occurrence: None)
  Receive Date: 20061227
  Receipt Date: 20061208
  Transmission Date: 20070319
  Serious: Yes (Death, Hospitalization)
  Sender: FDA-Public Use
  Company Number: POMP-10906

PATIENT
  Age: 19 Month
  Sex: Female
  Weight: 10 kg

DRUGS (2)
  1. MYOZYME [Suspect]
     Indication: GLYCOGEN STORAGE DISEASE TYPE II
     Dosage: 20 MG/KG QOW IV
     Route: 042
     Dates: start: 20060524, end: 20061206
  2. ALPHA-GLUCOSIDASE (HUMAN, RECOMBINANT, CHO CELLS, GENZYME) [Suspect]
     Indication: GLYCOGEN STORAGE DISEASE TYPE II
     Dosage: 20 MG/KG QOW IV
     Route: 042
     Dates: start: 20050808, end: 20060510

REACTIONS (7)
  - ASPIRATION [None]
  - ATELECTASIS [None]
  - CARDIAC ARREST [None]
  - CARDIAC FAILURE CONGESTIVE [None]
  - CARDIAC VENTRICULAR DISORDER [None]
  - PLEURAL EFFUSION [None]
  - RESPIRATORY DISORDER [None]
